FAERS Safety Report 11968765 (Version 22)
Quarter: 2020Q1

REPORT INFORMATION
  Report Type: Report from Study
  Country: CA (occurrence: CA)
  Receive Date: 20160128
  Receipt Date: 20200226
  Transmission Date: 20200409
  Serious: Yes (Other)
  Sender: FDA-Public Use
  Company Number: CA-ROCHE-1219752

PATIENT
  Age: 40 Year
  Sex: Male
  Weight: 60 kg

DRUGS (18)
  1. MARIJUANA [Concomitant]
     Active Substance: CANNABIS SATIVA SUBSP. INDICA TOP
  2. PROGRAF [Concomitant]
     Active Substance: TACROLIMUS
  3. ACTEMRA [Suspect]
     Active Substance: TOCILIZUMAB
     Indication: STILL^S DISEASE
     Route: 042
     Dates: start: 20111209
  4. CITALOPRAM [Concomitant]
     Active Substance: CITALOPRAM HYDROBROMIDE
     Indication: DEPRESSION
  5. PREDNISONE. [Concomitant]
     Active Substance: PREDNISONE
  6. COD LIVER [Concomitant]
     Active Substance: COD LIVER OIL
  7. TRAZODONE [Concomitant]
     Active Substance: TRAZODONE HYDROCHLORIDE
  8. ACTEMRA [Suspect]
     Active Substance: TOCILIZUMAB
     Route: 042
     Dates: start: 20150727
  9. TACROLIMUS. [Concomitant]
     Active Substance: TACROLIMUS
  10. INSULIN [Concomitant]
     Active Substance: INSULIN NOS
  11. DILAUDID [Concomitant]
     Active Substance: HYDROMORPHONE HYDROCHLORIDE
     Route: 065
  12. ACTEMRA [Suspect]
     Active Substance: TOCILIZUMAB
     Indication: OFF LABEL USE
     Route: 042
     Dates: start: 20130305
  13. ACTEMRA [Suspect]
     Active Substance: TOCILIZUMAB
     Route: 042
     Dates: start: 20161117
  14. MORPHINE [Concomitant]
     Active Substance: MORPHINE
  15. ACTEMRA [Suspect]
     Active Substance: TOCILIZUMAB
     Route: 042
     Dates: start: 20130523
  16. ACTEMRA [Suspect]
     Active Substance: TOCILIZUMAB
     Route: 042
     Dates: start: 20140108
  17. ACTEMRA [Suspect]
     Active Substance: TOCILIZUMAB
     Route: 042
     Dates: start: 20150223
  18. ACTEMRA [Suspect]
     Active Substance: TOCILIZUMAB
     Route: 042
     Dates: start: 20171120

REACTIONS (31)
  - Muscle strain [Unknown]
  - Pustule [Unknown]
  - Hunger [Not Recovered/Not Resolved]
  - Dental caries [Not Recovered/Not Resolved]
  - Peripheral swelling [Not Recovered/Not Resolved]
  - Pain in extremity [Not Recovered/Not Resolved]
  - Joint swelling [Unknown]
  - Mean cell haemoglobin increased [Unknown]
  - Blood pressure diastolic decreased [Unknown]
  - Blood pressure diastolic abnormal [Unknown]
  - Pain [Unknown]
  - Heart rate decreased [Unknown]
  - Weight decreased [Not Recovered/Not Resolved]
  - Blood cholesterol increased [Unknown]
  - Pneumonia [Recovered/Resolved]
  - Heart rate increased [Unknown]
  - Neutrophil count decreased [Unknown]
  - Blood pressure systolic abnormal [Unknown]
  - Influenza [Recovering/Resolving]
  - Allergy to plants [Unknown]
  - Dizziness postural [Not Recovered/Not Resolved]
  - Mean cell volume increased [Unknown]
  - Joint injury [Unknown]
  - Weight decreased [Recovering/Resolving]
  - Blood pressure systolic increased [Unknown]
  - Influenza [Recovered/Resolved]
  - Off label use [Unknown]
  - Ligament sprain [Unknown]
  - Weight increased [Recovered/Resolved]
  - Inflammation [Unknown]
  - Blood creatinine increased [Unknown]

NARRATIVE: CASE EVENT DATE: 20141208
